FAERS Safety Report 14902046 (Version 5)
Quarter: 2019Q3

REPORT INFORMATION
  Report Type: Spontaneous
  Country: US (occurrence: US)
  Receive Date: 20180516
  Receipt Date: 20190802
  Transmission Date: 20191004
  Serious: Yes (Hospitalization, Other)
  Sender: FDA-Public Use
  Company Number: US-JNJFOC-20180517119

PATIENT
  Age: 92 Year
  Sex: Female
  Weight: 53 kg

DRUGS (17)
  1. GABAPENTIN. [Concomitant]
     Active Substance: GABAPENTIN
  2. ISOSORBIDE MONONITRATE. [Concomitant]
     Active Substance: ISOSORBIDE MONONITRATE
  3. LEVOTHYROXINE. [Concomitant]
     Active Substance: LEVOTHYROXINE
  4. KLOR-CON [Concomitant]
     Active Substance: POTASSIUM CHLORIDE
  5. ATENOLOL. [Concomitant]
     Active Substance: ATENOLOL
  6. IMBRUVICA [Suspect]
     Active Substance: IBRUTINIB
     Route: 048
     Dates: start: 2018
  7. ATORVASTATIN [Concomitant]
     Active Substance: ATORVASTATIN
  8. MYRBETRIQ [Concomitant]
     Active Substance: MIRABEGRON
  9. IMBRUVICA [Suspect]
     Active Substance: IBRUTINIB
     Indication: PRODUCT USED FOR UNKNOWN INDICATION
     Route: 048
     Dates: end: 2018
  10. DETROL [Concomitant]
     Active Substance: TOLTERODINE TARTRATE
  11. BETIMOL [Concomitant]
     Active Substance: TIMOLOL
  12. TRAVATAN [Concomitant]
     Active Substance: TRAVOPROST
  13. NORCO [Concomitant]
     Active Substance: ACETAMINOPHEN\HYDROCODONE BITARTRATE
  14. IMBRUVICA [Suspect]
     Active Substance: IBRUTINIB
     Route: 048
  15. FOSAMAX [Concomitant]
     Active Substance: ALENDRONATE SODIUM
  16. AMIODARONE [Concomitant]
     Active Substance: AMIODARONE
  17. AMLODIPINE [Concomitant]
     Active Substance: AMLODIPINE BESYLATE

REACTIONS (7)
  - Transient ischaemic attack [Unknown]
  - Fatigue [Unknown]
  - Femur fracture [Unknown]
  - Fall [Recovering/Resolving]
  - Decreased activity [Unknown]
  - Avulsion fracture [Recovered/Resolved]
  - Cervical vertebral fracture [Recovered/Resolved]

NARRATIVE: CASE EVENT DATE: 20180412
